FAERS Safety Report 7949552-5 (Version None)
Quarter: 2011Q4

REPORT INFORMATION
  Report Type: 
  Country: None (occurrence: None)
  Receive Date: 20111130
  Receipt Date: 20111123
  Transmission Date: 20120403
  Serious: Yes (Death, Hospitalization)
  Sender: FDA-Public Use
  Company Number: GB-ROCHE-748411

PATIENT
  Sex: Male
  Weight: 101.3 kg

DRUGS (18)
  1. FINASTERIDE [Concomitant]
     Dates: start: 20090101, end: 20101227
  2. CYCLIZINE [Concomitant]
     Dates: start: 20101118, end: 20101227
  3. METOCLOPRAMIDE [Concomitant]
  4. AMLODIPINE [Concomitant]
     Dates: start: 20090101, end: 20101227
  5. ACYCLOVIR [Concomitant]
     Dates: start: 20101124, end: 20101227
  6. ALLOPURINOL [Concomitant]
     Dates: start: 20101124, end: 20101201
  7. TRAMADOL HCL [Concomitant]
     Dates: start: 20090101, end: 20101227
  8. ZOPICLONE [Concomitant]
  9. CYCLIZINE [Concomitant]
  10. SIMVASTATIN [Concomitant]
     Dates: start: 20090101, end: 20101227
  11. ALLOPURINOL [Concomitant]
  12. COTRIM [Concomitant]
  13. MABTHERA [Suspect]
     Indication: CHRONIC LYMPHOCYTIC LEUKAEMIA
     Dosage: LAST DOSE PRIOR TO SAE: 26 NOV 2010; THERAPY PERMANENTLY DISCONTINUED.
     Route: 042
     Dates: start: 20101124, end: 20101227
  14. IMMUNE GLOBULIN (HUMAN) [Suspect]
     Indication: PNEUMONIA
     Route: 042
     Dates: start: 20101108, end: 20101227
  15. ACYCLOVIR [Concomitant]
  16. PARACETAMOL [Concomitant]
  17. CHLORAMBUCIL [Suspect]
     Indication: CHRONIC LYMPHOCYTIC LEUKAEMIA
     Dosage: LAST DOSE PRIOR TO SAE: 30 NOV 2010; THERAPY PERMANENTLY DISCONTINUED.
     Route: 048
     Dates: start: 20101124, end: 20101227
  18. DOMPERIDONE [Concomitant]
     Dates: start: 20101124, end: 20101227

REACTIONS (1)
  - NEUTROPENIC SEPSIS [None]
